FAERS Safety Report 6514367-1 (Version None)
Quarter: 2009Q4

REPORT INFORMATION
  Report Type: 
  Country: None (occurrence: None)
  Receive Date: 20091223
  Receipt Date: 20091217
  Transmission Date: 20100525
  Serious: Yes (Other)
  Sender: FDA-Public Use
  Company Number: US-RB-027104-09

PATIENT
  Age: 5 Year
  Sex: Female

DRUGS (1)
  1. DELSYM ADULT ORANGE [Suspect]
     Dosage: 1/2 TEASPOON ONCE DAILY
     Route: 048
     Dates: start: 20091216

REACTIONS (6)
  - DRUG INEFFECTIVE [None]
  - DYSPNOEA [None]
  - HYPERSENSITIVITY [None]
  - LIP SWELLING [None]
  - SWELLING FACE [None]
  - URTICARIA [None]
